FAERS Safety Report 13162767 (Version 1)
Quarter: 2017Q1

REPORT INFORMATION
  Report Type: Report from Study
  Country: US (occurrence: US)
  Receive Date: 20170130
  Receipt Date: 20170130
  Transmission Date: 20170428
  Serious: Yes (Death, Other)
  Sender: FDA-Public Use
  Company Number: PHHO2015US016038

PATIENT
  Age: 77 Year
  Sex: Male
  Weight: 82.3 kg

DRUGS (2)
  1. PAZOPANIB [Suspect]
     Active Substance: PAZOPANIB
     Indication: THYROID CANCER
     Dosage: 400 MG, QD
     Route: 048
     Dates: start: 20150827, end: 20150902
  2. PACLITAXEL. [Suspect]
     Active Substance: PACLITAXEL
     Indication: THYROID CANCER
     Dosage: 167 MG, SINGLE
     Route: 042
     Dates: start: 20150827, end: 20150827

REACTIONS (1)
  - Death [Fatal]

NARRATIVE: CASE EVENT DATE: 20150903
